FAERS Safety Report 9200512 (Version 1)
Quarter: 2013Q1

REPORT INFORMATION
  Report Type: Spontaneous
  Country: US (occurrence: US)
  Receive Date: 20130329
  Receipt Date: 20130329
  Transmission Date: 20140127
  Serious: Yes (Other)
  Sender: FDA-Public Use
  Company Number: US-ASTRAZENECA-2013SE18782

PATIENT
  Age: 25012 Day
  Sex: Female
  Weight: 64.9 kg

DRUGS (12)
  1. OMEPRAZOLE [Suspect]
     Indication: GASTROOESOPHAGEAL REFLUX DISEASE
     Route: 048
  2. CRESTOR [Suspect]
     Indication: HYPERLIPIDAEMIA
     Route: 048
     Dates: start: 20130124, end: 20130223
  3. CRESTOR [Suspect]
     Indication: CORONARY ARTERY DISEASE
     Route: 048
     Dates: start: 20130124, end: 20130223
  4. CARVEDILOL [Concomitant]
     Indication: HYPERTENSION
     Route: 048
  5. HCTZ [Concomitant]
     Indication: HYPERTENSION
     Route: 048
  6. OMEGA 3 [Concomitant]
     Route: 048
  7. COENZYME Q10 [Concomitant]
     Route: 048
  8. LOSARTAN [Concomitant]
     Indication: HYPERTENSION
     Route: 048
  9. ASPIRIN [Concomitant]
     Indication: PROPHYLAXIS
     Route: 048
  10. VITAMIN B12 [Concomitant]
     Indication: VITAMIN SUPPLEMENTATION
     Route: 048
  11. CALCIUM AND VITAMIN D [Concomitant]
     Indication: VITAMIN SUPPLEMENTATION
  12. SEVERAL OTHER STATINS [Concomitant]

REACTIONS (1)
  - Rhabdomyolysis [Recovering/Resolving]
